APPROVED DRUG PRODUCT: MYOTONACHOL
Active Ingredient: BETHANECHOL CHLORIDE
Strength: 10MG
Dosage Form/Route: TABLET;ORAL
Application: A084188 | Product #003
Applicant: GLENWOOD INC
Approved: Approved Prior to Jan 1, 1982 | RLD: No | RS: No | Type: DISCN